FAERS Safety Report 18899463 (Version 2)
Quarter: 2021Q1

REPORT INFORMATION
  Report Type: Spontaneous
  Country: JP (occurrence: JP)
  Receive Date: 20210216
  Receipt Date: 20210312
  Transmission Date: 20210420
  Serious: No
  Sender: FDA-Public Use
  Company Number: JP-ASTRAZENECA-2021A020451

PATIENT
  Age: 31 Year
  Sex: Female

DRUGS (2)
  1. FORXIGA [Suspect]
     Active Substance: DAPAGLIFLOZIN
     Indication: TYPE 1 DIABETES MELLITUS
     Route: 048
  2. INSULIN [Concomitant]
     Active Substance: INSULIN NOS
     Route: 065

REACTIONS (5)
  - Physical deconditioning [Unknown]
  - Weight decreased [Unknown]
  - Urine ketone body [Unknown]
  - Ketosis [Unknown]
  - Hypoglycaemia [Unknown]
